FAERS Safety Report 11135421 (Version 1)
Quarter: 2015Q2

REPORT INFORMATION
  Report Type: Spontaneous
  Country: US (occurrence: None)
  Receive Date: 20150522
  Receipt Date: 20150522
  Transmission Date: 20150821
  Serious: Yes (Disabling)
  Sender: FDA-Public Use
  Company Number: None

PATIENT
  Age: 70 Year
  Sex: Female
  Weight: 62.14 kg

DRUGS (7)
  1. LEVAQUIN [Suspect]
     Active Substance: LEVOFLOXACIN
     Indication: SINUSITIS
     Dosage: 7 PILLS
     Dates: start: 20150302, end: 20150308
  2. MULTIPLE VITAMIN [Concomitant]
     Active Substance: VITAMINS
  3. FISH OIL [Concomitant]
     Active Substance: FISH OIL
  4. TAMOXIFEN [Concomitant]
     Active Substance: TAMOXIFEN
  5. CALCIUM [Concomitant]
     Active Substance: CALCIUM
  6. D [Concomitant]
  7. BIOTIN [Concomitant]
     Active Substance: BIOTIN

REACTIONS (2)
  - Movement disorder [None]
  - Mobility decreased [None]

NARRATIVE: CASE EVENT DATE: 20150308
